FAERS Safety Report 6158471-9 (Version None)
Quarter: 2009Q2

REPORT INFORMATION
  Report Type: 
  Country: None (occurrence: None)
  Receive Date: 20090414
  Receipt Date: 20090414
  Transmission Date: 20091009
  Serious: Yes (Other)
  Sender: FDA-Public Use
  Company Number: None

PATIENT
  Sex: Male
  Weight: 1.69 kg

DRUGS (5)
  1. FLUDARABINE PHOSPHATE [Suspect]
     Indication: DRUG USE FOR UNKNOWN INDICATION
  2. CYTARABINE [Suspect]
     Indication: DRUG USE FOR UNKNOWN INDICATION
  3. IDARUBICIN HCL [Suspect]
     Indication: DRUG USE FOR UNKNOWN INDICATION
  4. MYLOTARG [Suspect]
     Indication: DRUG USE FOR UNKNOWN INDICATION
  5. MITOXANTRONE [Suspect]
     Indication: DRUG USE FOR UNKNOWN INDICATION

REACTIONS (14)
  - ANAEMIA [None]
  - CAESAREAN SECTION [None]
  - CARDIOMYOPATHY [None]
  - CARDIOTOXICITY [None]
  - CEREBRAL VENTRICLE DILATATION [None]
  - CORONARY ARTERY DILATATION [None]
  - FOETAL DISORDER [None]
  - HYPERTROPHY [None]
  - MATERNAL DRUGS AFFECTING FOETUS [None]
  - PERICARDIAL EFFUSION [None]
  - SMALL FOR DATES BABY [None]
  - SUPRAVENTRICULAR EXTRASYSTOLES [None]
  - THROMBOCYTOPENIA [None]
  - VENTRICULAR SEPTAL DEFECT [None]
